FAERS Safety Report 5031249-5 (Version None)
Quarter: 2006Q2

REPORT INFORMATION
  Report Type: 
  Country: None (occurrence: None)
  Receive Date: 20060615
  Receipt Date: 20060530
  Transmission Date: 20061013
  Serious: Yes (Hospitalization)
  Sender: FDA-Public Use
  Company Number: VE200606000203

PATIENT
  Age: 54 Year
  Sex: Female
  Weight: 69.4 kg

DRUGS (3)
  1. CYMBALTA [Suspect]
     Dosage: 60 MG DAILY (1/D) ORAL
     Route: 048
     Dates: start: 20060420
  2. METHOTREXATE [Concomitant]
  3. EUTIROX (LEVOTHYROXINE) [Concomitant]

REACTIONS (2)
  - HYPOTENSION [None]
  - SUPRAVENTRICULAR TACHYCARDIA [None]
